FAERS Safety Report 8831046 (Version 1)
Quarter: 2012Q4

REPORT INFORMATION
  Report Type: 
  Country: US (occurrence: US)
  Receive Date: 20121008
  Receipt Date: 20121008
  Transmission Date: 20130627
  Serious: No
  Sender: FDA-Public Use
  Company Number: US-BAYER-2012-104720

PATIENT
  Age: 70 Year
  Sex: Female
  Weight: 54 kg

DRUGS (3)
  1. ALEVE CAPLET/TABLET,MIDOL EXTENDED RELIEF CAPLET [Suspect]
     Indication: ANALGESIC THERAPY
     Dosage: 1 DF, BID
     Route: 048
     Dates: start: 201207
  2. VITAMINS [Concomitant]
  3. GENERIC FORM OF ZIAC [Concomitant]

REACTIONS (1)
  - No adverse event [None]
